FAERS Safety Report 17042203 (Version 2)
Quarter: 2019Q4

REPORT INFORMATION
  Report Type: Spontaneous
  Country: US (occurrence: US)
  Receive Date: 20191118
  Receipt Date: 20191213
  Transmission Date: 20200122
  Serious: No
  Sender: FDA-Public Use
  Company Number: US-ASTRAZENECA-2019SF60916

PATIENT
  Sex: Male

DRUGS (1)
  1. BYDUREON BCISE [Suspect]
     Active Substance: EXENATIDE
     Route: 065
     Dates: start: 201808

REACTIONS (5)
  - Device leakage [Unknown]
  - Incorrect dose administered by device [Not Recovered/Not Resolved]
  - Injection site haemorrhage [Unknown]
  - Intentional device misuse [Unknown]
  - Device malfunction [Unknown]
